FAERS Safety Report 8832749 (Version 2)
Quarter: 2012Q4

REPORT INFORMATION
  Report Type: 
  Country: JP (occurrence: JP)
  Receive Date: 20121010
  Receipt Date: 20121113
  Transmission Date: 20130627
  Serious: No
  Sender: FDA-Public Use
  Company Number: JP-JNJFOC-20121001105

PATIENT
  Age: 70 Year
  Sex: Female

DRUGS (2)
  1. DUROTEP MT [Suspect]
     Indication: CANCER PAIN
     Route: 062
     Dates: start: 2012
  2. ONEDURO [Suspect]
     Indication: CANCER PAIN
     Route: 062

REACTIONS (4)
  - Nausea [Recovered/Resolved]
  - Therapeutic response decreased [Unknown]
  - Inappropriate schedule of drug administration [Unknown]
  - Overdose [Unknown]
